FAERS Safety Report 9851339 (Version 2)
Quarter: 2014Q1

REPORT INFORMATION
  Report Type: Spontaneous
  Country: FR (occurrence: FR)
  Receive Date: 20140129
  Receipt Date: 20140129
  Transmission Date: 20141002
  Serious: Yes (Other)
  Sender: FDA-Public Use
  Company Number: FR-ROCHE-1298017

PATIENT
  Age: 63 Year
  Sex: Male
  Weight: 67 kg

DRUGS (15)
  1. AVASTIN [Suspect]
     Indication: COLON CANCER METASTATIC
     Route: 065
     Dates: start: 20131003, end: 20131003
  2. AVASTIN [Suspect]
     Route: 065
     Dates: start: 20111027, end: 20120216
  3. AVASTIN [Suspect]
     Route: 065
     Dates: start: 20120516, end: 20120809
  4. PANITUMUMAB [Suspect]
     Indication: PRODUCT USED FOR UNKNOWN INDICATION
     Route: 065
     Dates: start: 20120426
  5. INNOHEP [Concomitant]
     Route: 058
     Dates: start: 2010
  6. EPIRUBICIN [Concomitant]
  7. ENDOXAN [Concomitant]
  8. TAXOTERE [Concomitant]
  9. FEMARA [Concomitant]
  10. OXALIPLATIN [Concomitant]
     Route: 065
     Dates: start: 20111027, end: 20120216
  11. FOLINIC ACID [Concomitant]
     Route: 065
     Dates: start: 20111027, end: 20120216
  12. FOLINIC ACID [Concomitant]
     Route: 065
     Dates: start: 20120516, end: 20120809
  13. FLUOROURACIL [Concomitant]
     Route: 065
     Dates: start: 20111027, end: 20120216
  14. FLUOROURACIL [Concomitant]
     Route: 065
     Dates: start: 20120516, end: 20120809
  15. IRINOTECAN [Concomitant]
     Route: 065
     Dates: start: 20120516, end: 20120809

REACTIONS (7)
  - Thrombocytopenia [Recovered/Resolved]
  - Malaise [Recovered/Resolved]
  - Vomiting [Recovered/Resolved]
  - Diarrhoea [Recovered/Resolved]
  - Chills [Recovered/Resolved]
  - Pyrexia [Recovered/Resolved]
  - Immune thrombocytopenic purpura [Recovered/Resolved]
